FAERS Safety Report 12720928 (Version 1)
Quarter: 2016Q3

REPORT INFORMATION
  Report Type: Other
  Country: US (occurrence: US)
  Receive Date: 20160907
  Receipt Date: 20160907
  Transmission Date: 20161109
  Serious: No
  Sender: FDA-Public Use
  Company Number: US-COL_21340_2015

PATIENT
  Sex: Male

DRUGS (1)
  1. COLGATE TOTAL ADVANCED WHITENING [Suspect]
     Active Substance: SODIUM FLUORIDE\TRICLOSAN
     Indication: PRODUCT USED FOR UNKNOWN INDICATION
     Dosage: COVERED ABOUT HALF THE HEAD OF HIS TOOTHBRUSH/QD/
     Route: 048
     Dates: start: 2015

REACTIONS (5)
  - Nasal congestion [Recovered/Resolved]
  - Choking sensation [Recovered/Resolved]
  - Cough [Recovered/Resolved]
  - Accidental exposure to product [Unknown]
  - Throat irritation [Not Recovered/Not Resolved]

NARRATIVE: CASE EVENT DATE: 2015
